FAERS Safety Report 9158454 (Version 1)
Quarter: 2013Q1

REPORT INFORMATION
  Report Type: Spontaneous
  Country: FR (occurrence: FR)
  Receive Date: 20130312
  Receipt Date: 20130312
  Transmission Date: 20140127
  Serious: Yes (Hospitalization, Other)
  Sender: FDA-Public Use
  Company Number: FR-BRISTOL-MYERS SQUIBB COMPANY-17442260

PATIENT
  Age: 70 Year
  Sex: Male

DRUGS (7)
  1. QUESTRAN [Suspect]
     Dosage: 18DEC2012
     Route: 048
     Dates: start: 20121201, end: 20130107
  2. COUMADINE [Interacting]
     Dates: start: 20130104
  3. HEPARIN [Interacting]
  4. PRADAXA [Suspect]
     Dates: start: 20121218, end: 20121228
  5. PREVISCAN [Suspect]
     Indication: ATRIAL FIBRILLATION
     Dates: start: 20121201, end: 20121218
  6. INSULATARD [Concomitant]
  7. BISOPROLOL [Concomitant]

REACTIONS (5)
  - Atrial fibrillation [Unknown]
  - Drug ineffective [Recovered/Resolved with Sequelae]
  - Haemorrhagic stroke [Unknown]
  - Drug interaction [Unknown]
  - International normalised ratio abnormal [Unknown]
